FAERS Safety Report 23337960 (Version 1)
Quarter: 2023Q4

REPORT INFORMATION
  Report Type: Spontaneous
  Country: US (occurrence: US)
  Receive Date: 20231226
  Receipt Date: 20231226
  Transmission Date: 20240110
  Serious: No
  Sender: FDA-Public Use
  Company Number: US-GLENMARK PHARMACEUTICALS-2022GMK077469

PATIENT

DRUGS (2)
  1. ETHINYL ESTRADIOL\NORETHINDRONE ACETATE [Suspect]
     Active Substance: ETHINYL ESTRADIOL\NORETHINDRONE ACETATE
     Indication: Contraception
     Dosage: UNK UNK, OD
     Route: 048
  2. BUPROPION HYDROCHLORIDE XL [Concomitant]
     Active Substance: BUPROPION HYDROCHLORIDE
     Indication: Anxiety
     Dosage: 150 MILLIGRAM
     Route: 065

REACTIONS (1)
  - Product dose omission issue [Unknown]
